FAERS Safety Report 21437171 (Version 1)
Quarter: 2022Q4

REPORT INFORMATION
  Report Type: Spontaneous
  Country: US (occurrence: None)
  Receive Date: 20221007
  Receipt Date: 20221007
  Transmission Date: 20230112
  Serious: No
  Sender: FDA-Public Use
  Company Number: None

PATIENT
  Sex: Male

DRUGS (1)
  1. OPDIVO [Suspect]
     Active Substance: NIVOLUMAB
     Indication: Renal cancer
     Dosage: 480MG EVERY 14 DAYS SUBCUTANEOUSLY?
     Route: 042
     Dates: start: 20220701

REACTIONS (2)
  - Hepatic enzyme increased [None]
  - Therapy interrupted [None]
